FAERS Safety Report 10482414 (Version 2)
Quarter: 2014Q4

REPORT INFORMATION
  Report Type: Spontaneous
  Country: US (occurrence: US)
  Receive Date: 20140929
  Receipt Date: 20141230
  Transmission Date: 20150528
  Serious: Yes (Hospitalization, Other)
  Sender: FDA-Public Use
  Company Number: US-BAYER-2014-143622

PATIENT
  Age: 30 Year
  Sex: Female
  Weight: 82.99 kg

DRUGS (3)
  1. MIRENA [Suspect]
     Active Substance: LEVONORGESTREL
     Indication: CONTRACEPTION
     Dosage: 20 MCG/24HR, CONT
     Route: 015
     Dates: start: 20100827, end: 20130419
  2. MIRENA [Suspect]
     Active Substance: LEVONORGESTREL
     Indication: MENORRHAGIA
  3. MOTRIN [Concomitant]
     Active Substance: IBUPROFEN
     Indication: MENORRHAGIA

REACTIONS (10)
  - Uterine perforation [None]
  - Intra-uterine contraceptive device removal [None]
  - Injury [Not Recovered/Not Resolved]
  - Sexual dysfunction [None]
  - Abdominal pain [Not Recovered/Not Resolved]
  - Device dislocation [Not Recovered/Not Resolved]
  - Emotional distress [Not Recovered/Not Resolved]
  - Depression [None]
  - Anxiety [None]
  - Fear [None]

NARRATIVE: CASE EVENT DATE: 201110
